FAERS Safety Report 7943670-3 (Version None)
Quarter: 2011Q4

REPORT INFORMATION
  Report Type: 
  Country: None (occurrence: None)
  Receive Date: 20111128
  Receipt Date: 20111118
  Transmission Date: 20120403
  Serious: Yes (Hospitalization)
  Sender: FDA-Public Use
  Company Number: US-NOVOPROD-337151

PATIENT

DRUGS (2)
  1. LIRAGLUTIDE FLEXPEN [Suspect]
     Indication: OBESITY
     Dosage: 3.0 MG, QD
     Route: 058
     Dates: start: 20110805, end: 20111007
  2. FLAGYL [Concomitant]
     Indication: BILE DUCT STONE
     Dosage: 2000 MG, QD
     Dates: start: 20111014, end: 20111017

REACTIONS (2)
  - BILE DUCT STONE [None]
  - ABDOMINAL PAIN [None]
